FAERS Safety Report 13948661 (Version 1)
Quarter: 2017Q3

REPORT INFORMATION
  Report Type: Spontaneous
  Country: US (occurrence: None)
  Receive Date: 20170907
  Receipt Date: 20170907
  Transmission Date: 20171128
  Serious: No
  Sender: FDA-Public Use
  Company Number: None

PATIENT
  Age: 82 Year
  Sex: Female
  Weight: 63.96 kg

DRUGS (1)
  1. HYDROCHLOROTHIAZIDE CAPS 12.5MG [Suspect]
     Active Substance: HYDROCHLOROTHIAZIDE
     Indication: PRODUCT USED FOR UNKNOWN INDICATION
     Route: 048

REACTIONS (4)
  - Dizziness [None]
  - Restlessness [None]
  - Product size issue [None]
  - Product colour issue [None]

NARRATIVE: CASE EVENT DATE: 20170705
